FAERS Safety Report 24062191 (Version 1)
Quarter: 2024Q3

REPORT INFORMATION
  Report Type: Spontaneous
  Country: SE (occurrence: SE)
  Receive Date: 20240708
  Receipt Date: 20240708
  Transmission Date: 20241016
  Serious: Yes (Other)
  Sender: BRAEBURN PHARMACEUTICALS
  Company Number: SE-CAMURUS AB-SE-CAM-24-00612

PATIENT
  Age: 45 Year
  Sex: Male

DRUGS (1)
  1. BUPRENORPHINE [Suspect]
     Active Substance: BUPRENORPHINE
     Indication: Product used for unknown indication
     Dosage: 32 MILLIGRAM, WEEKLY
     Route: 065
     Dates: start: 20230831

REACTIONS (1)
  - Chest pain [Unknown]
